FAERS Safety Report 25494151 (Version 2)
Quarter: 2025Q3

REPORT INFORMATION
  Report Type: Report from Study
  Country: US (occurrence: US)
  Receive Date: 20250630
  Receipt Date: 20250718
  Transmission Date: 20251020
  Serious: Yes (Other)
  Sender: ACADIA PHARMACEUTICALS
  Company Number: US-ACADIA PHARMACEUTICALS INC.-ACA-2025-PIM-007614

PATIENT
  Age: 85 Year
  Sex: Female
  Weight: 44.444 kg

DRUGS (10)
  1. NUPLAZID [Suspect]
     Active Substance: PIMAVANSERIN TARTRATE
     Indication: Parkinson^s disease psychosis
     Dosage: 34 MILLIGRAM, QD
     Route: 048
  2. BOTOX [Concomitant]
     Active Substance: ONABOTULINUMTOXINA
     Indication: Torticollis
  3. ZTLIDO [Concomitant]
     Active Substance: LIDOCAINE
     Indication: Back pain
  4. CYANOCOBALAMIN [Concomitant]
     Active Substance: CYANOCOBALAMIN
     Route: 030
  5. NEUPRO [Concomitant]
     Active Substance: ROTIGOTINE
     Dosage: 8 MG PATCH QAM
  6. FOLIC ACID [Concomitant]
     Active Substance: FOLIC ACID
     Dosage: 2 MG PO QD
     Route: 048
  7. SINEMET [Concomitant]
     Active Substance: CARBIDOPA\LEVODOPA
  8. LAMICTAL [Concomitant]
     Active Substance: LAMOTRIGINE
  9. ASPIRIN [Concomitant]
     Active Substance: ASPIRIN
     Dosage: 81 MILLIGRAM, PO Q DAY FOR NOW
     Route: 048
  10. ARICEPT [Concomitant]
     Active Substance: DONEPEZIL HYDROCHLORIDE
     Dosage: 10 MGS QAM

REACTIONS (16)
  - Hallucination [Unknown]
  - Wheelchair user [Not Recovered/Not Resolved]
  - Abdominal distension [Not Recovered/Not Resolved]
  - Depression [Unknown]
  - Impaired quality of life [Unknown]
  - Upper limb fracture [Unknown]
  - Head injury [Unknown]
  - Walking disability [Unknown]
  - Appetite disorder [Unknown]
  - Memory impairment [Unknown]
  - Cognitive disorder [Unknown]
  - Crying [Unknown]
  - Depressed mood [Unknown]
  - Fall [Unknown]
  - Fall [Unknown]
  - Drug ineffective [Unknown]

NARRATIVE: CASE EVENT DATE: 20240401
